FAERS Safety Report 11500911 (Version 1)
Quarter: 2015Q3

REPORT INFORMATION
  Report Type: Spontaneous
  Country: US (occurrence: None)
  Receive Date: 20150911
  Receipt Date: 20150911
  Transmission Date: 20151125
  Serious: Yes (Hospitalization, Disabling)
  Sender: FDA-Public Use
  Company Number: None

PATIENT
  Age: 38 Year
  Sex: Male
  Weight: 108.86 kg

DRUGS (1)
  1. LATUDA [Suspect]
     Active Substance: LURASIDONE HYDROCHLORIDE
     Indication: SCHIZOAFFECTIVE DISORDER
     Dosage: 1
     Route: 048
     Dates: start: 20100930, end: 20111231

REACTIONS (4)
  - Seizure [None]
  - Abnormal behaviour [None]
  - Agitation [None]
  - Loss of consciousness [None]

NARRATIVE: CASE EVENT DATE: 20111124
